FAERS Safety Report 17500221 (Version 1)
Quarter: 2020Q1

REPORT INFORMATION
  Report Type: Spontaneous
  Country: JP (occurrence: JP)
  Receive Date: 20200305
  Receipt Date: 20200305
  Transmission Date: 20200409
  Serious: Yes (Other)
  Sender: FDA-Public Use
  Company Number: JP-GLAXOSMITHKLINE-JP2020037485

PATIENT
  Sex: Female

DRUGS (1)
  1. SERETIDE [Suspect]
     Active Substance: FLUTICASONE PROPIONATE\SALMETEROL XINAFOATE
     Indication: ASTHMA
     Dosage: UNK, BID
     Route: 055
     Dates: start: 2020

REACTIONS (2)
  - Dysphonia [Unknown]
  - Upper respiratory fungal infection [Recovered/Resolved]

NARRATIVE: CASE EVENT DATE: 2020
